FAERS Safety Report 20725482 (Version 4)
Quarter: 2022Q3

REPORT INFORMATION
  Report Type: Spontaneous
  Country: JP (occurrence: JP)
  Receive Date: 20220419
  Receipt Date: 20220720
  Transmission Date: 20221027
  Serious: Yes (Hospitalization)
  Sender: FDA-Public Use
  Company Number: JP-ORGANON-O2202JPN001453

PATIENT
  Age: 81 Year
  Sex: Female

DRUGS (14)
  1. BONALON [Suspect]
     Active Substance: ALENDRONATE SODIUM
     Indication: Osteoporosis
     Dosage: 5 MILLIGRAM
     Route: 048
     Dates: start: 20040329, end: 20071205
  2. BONALON [Suspect]
     Active Substance: ALENDRONATE SODIUM
     Indication: Osteoporosis
     Dosage: 35 MILLIGRAM PER WEEK
     Route: 048
     Dates: start: 20071206, end: 2018
  3. PREDONINE [Suspect]
     Active Substance: PREDNISOLONE
     Indication: Rheumatoid arthritis
     Dosage: 5 MILLIGRAM
     Route: 048
     Dates: start: 20070811
  4. MINODRONIC ACID [Suspect]
     Active Substance: MINODRONIC ACID
     Indication: Osteoporosis
     Dosage: 50 MILLIGRAM PER 4 WEEKS
     Route: 048
     Dates: start: 2018, end: 20181001
  5. DIDRONEL [Suspect]
     Active Substance: ETIDRONATE DISODIUM
     Indication: Osteoporosis
     Dosage: 1 DOSAGE FORM
     Route: 048
     Dates: start: 19991206, end: 20040328
  6. AZULFIDINE EN-TABS [Concomitant]
     Active Substance: SULFASALAZINE
     Indication: Rheumatoid arthritis
     Dosage: 1000 MILLIGRAM/DAY
     Route: 048
     Dates: start: 20180205
  7. IGURATIMOD [Concomitant]
     Active Substance: IGURATIMOD
     Indication: Rheumatoid arthritis
     Dosage: 25 MILLIGRAM/DAY
     Route: 048
     Dates: start: 20180205
  8. ROSUVASTATIN CALCIUM [Concomitant]
     Active Substance: ROSUVASTATIN CALCIUM
     Indication: Hypercholesterolaemia
     Dosage: 5 MILLIGRAM/DAY
     Route: 048
     Dates: start: 20180205
  9. CELECOXIB [Concomitant]
     Active Substance: CELECOXIB
     Indication: Rheumatoid arthritis
     Dosage: 200 MILLIGRAM/DAY
     Route: 048
     Dates: start: 20180205
  10. TEPRENONE [Concomitant]
     Active Substance: TEPRENONE
     Indication: Gastritis
     Dosage: 100 MILLIGRAM/DAY
     Route: 048
     Dates: start: 20180205
  11. AMBROXOL HYDROCHLORIDE [Concomitant]
     Active Substance: AMBROXOL HYDROCHLORIDE
     Dosage: 45 MILLIGRAM/DAY
     Route: 048
     Dates: start: 20180205
  12. NEXIUM [Concomitant]
     Active Substance: ESOMEPRAZOLE MAGNESIUM
     Indication: Gastritis
     Dosage: 20 MILLIGRAM/DAY
     Route: 048
     Dates: start: 20180205
  13. SPIRIVA [Concomitant]
     Active Substance: TIOTROPIUM BROMIDE MONOHYDRATE
     Dosage: 50 MICROGRAM/DAY
     Dates: start: 20180205
  14. LOXOPROFEN SODIUM [Concomitant]
     Active Substance: LOXOPROFEN SODIUM
     Indication: Abscess neck
     Dosage: 180 MILLIGRAM/DAY
     Route: 048
     Dates: start: 20180925

REACTIONS (3)
  - Necrotising soft tissue infection [Recovered/Resolved]
  - Osteonecrosis of jaw [Recovered/Resolved]
  - Osteonecrosis of jaw [Recovered/Resolved]

NARRATIVE: CASE EVENT DATE: 20180927
